FAERS Safety Report 5831030-0 (Version None)
Quarter: 2008Q3

REPORT INFORMATION
  Report Type: 
  Country: None (occurrence: None)
  Receive Date: 20080801
  Receipt Date: 20080321
  Transmission Date: 20090109
  Serious: Yes (Hospitalization, Other)
  Sender: FDA-Public Use
  Company Number: US-BRISTOL-MYERS SQUIBB COMPANY-14112510

PATIENT
  Age: 79 Year
  Sex: Female
  Weight: 67 kg

DRUGS (6)
  1. COUMADIN [Suspect]
     Dosage: 4MG,0.5TABS/D,11MAR08.
  2. PRAVACHOL [Concomitant]
  3. VERAPAMIL [Concomitant]
  4. ZETIA [Concomitant]
  5. LEVAQUIN [Concomitant]
  6. PREDNISONE [Concomitant]
     Dates: start: 20080115

REACTIONS (1)
  - INCORRECT DOSE ADMINISTERED [None]
